FAERS Safety Report 18028479 (Version 1)
Quarter: 2020Q3

REPORT INFORMATION
  Report Type: Spontaneous
  Country: GB (occurrence: GB)
  Receive Date: 20200716
  Receipt Date: 20200716
  Transmission Date: 20201103
  Serious: Yes (Other)
  Sender: FDA-Public Use
  Company Number: GB-TEVA-2020-GB-1802139

PATIENT
  Sex: Male

DRUGS (3)
  1. NEORECORMON [Concomitant]
     Active Substance: ERYTHROPOIETIN
     Dosage: 600 IU
  2. MYFENAX [Suspect]
     Active Substance: MYCOPHENOLATE MOFETIL
     Dosage: 500 MG
  3. ADOPORT [Concomitant]
     Active Substance: TACROLIMUS
     Dosage: 1 MG

REACTIONS (1)
  - Kaposi^s sarcoma [Unknown]
